FAERS Safety Report 12554916 (Version 1)
Quarter: 2016Q3

REPORT INFORMATION
  Report Type: Spontaneous
  Country: US (occurrence: US)
  Receive Date: 20160713
  Receipt Date: 20160713
  Transmission Date: 20161109
  Serious: No
  Sender: FDA-Public Use
  Company Number: US-BIOGEN-2016BI00264318

PATIENT
  Sex: Female

DRUGS (1)
  1. AVONEX [Suspect]
     Active Substance: INTERFERON BETA-1A
     Indication: MULTIPLE SCLEROSIS
     Route: 065
     Dates: start: 19971201

REACTIONS (7)
  - Eye disorder [Unknown]
  - Pancreatic disorder [Unknown]
  - Oedema peripheral [Unknown]
  - Dry mouth [Unknown]
  - Musculoskeletal stiffness [Unknown]
  - Cataract [Unknown]
  - Nasopharyngitis [Unknown]
